FAERS Safety Report 12231008 (Version 2)
Quarter: 2016Q2

REPORT INFORMATION
  Report Type: Spontaneous
  Country: US (occurrence: US)
  Receive Date: 20160401
  Receipt Date: 20160526
  Transmission Date: 20160815
  Serious: Yes (Hospitalization)
  Sender: FDA-Public Use
  Company Number: US-JNJFOC-20160324098

PATIENT
  Age: 55 Year
  Sex: Male

DRUGS (3)
  1. XARELTO [Suspect]
     Active Substance: RIVAROXABAN
     Indication: DEEP VEIN THROMBOSIS
     Dosage: 15 AND 20 MG
     Route: 048
     Dates: start: 20131014, end: 20141229
  2. ELIQUIS [Suspect]
     Active Substance: APIXABAN
     Indication: DEEP VEIN THROMBOSIS
     Route: 065
     Dates: start: 201501, end: 20150109
  3. ELIQUIS [Suspect]
     Active Substance: APIXABAN
     Indication: DEEP VEIN THROMBOSIS
     Route: 065
     Dates: start: 20150110

REACTIONS (2)
  - Haemorrhoidal haemorrhage [Recovering/Resolving]
  - Enterocolitis haemorrhagic [Recovering/Resolving]

NARRATIVE: CASE EVENT DATE: 20141226
